FAERS Safety Report 16921024 (Version 3)
Quarter: 2019Q4

REPORT INFORMATION
  Report Type: Report from Study
  Country: BE (occurrence: BE)
  Receive Date: 20191015
  Receipt Date: 20191114
  Transmission Date: 20200122
  Serious: Yes (Life-Threatening, Hospitalization, Other)
  Sender: FDA-Public Use
  Company Number: BE-SEATTLE GENETICS-2019SGN03506

PATIENT
  Age: 23 Year
  Sex: Female
  Weight: 78 kg

DRUGS (17)
  1. AACIDEXAM                          /00016001/ [Concomitant]
     Indication: NAUSEA
     Dosage: 4 MILLIGRAM
     Route: 042
  2. DACARBAZINE. [Suspect]
     Active Substance: DACARBAZINE
     Indication: HODGKIN^S DISEASE
     Dosage: 720.00 MILLIGRAM, Q2WEEKS
     Route: 042
     Dates: start: 20190802
  3. ADRIAMYCIN [Suspect]
     Active Substance: DOXORUBICIN HYDROCHLORIDE
     Dosage: 47.00 MILLIGRAM, Q2WEEKS
     Route: 042
     Dates: start: 20191025
  4. AACIDEXAM                          /00016001/ [Concomitant]
     Indication: VOMITING
  5. BRENTUXIMAB VEDOTIN [Suspect]
     Active Substance: BRENTUXIMAB VEDOTIN
     Dosage: 90.6 MILLIGRAM, Q14D
     Route: 042
     Dates: start: 20191025
  6. DEXAMETHASONE. [Suspect]
     Active Substance: DEXAMETHASONE
     Indication: HODGKIN^S DISEASE
     Dosage: 4.0 MILLIGRAM, Q2WEEKS
     Route: 042
     Dates: start: 20190802
  7. PANTOMED                           /00178901/ [Concomitant]
     Active Substance: DEXPANTHENOL
     Indication: PROPHYLAXIS
     Dosage: 40 MILLIGRAM, QD
     Route: 048
     Dates: start: 20190812
  8. DACARBAZINE. [Suspect]
     Active Substance: DACARBAZINE
     Dosage: 705.00 MILLIGRAM, Q2WEEKS
     Route: 042
     Dates: start: 20191025
  9. ADRIAMYCIN [Suspect]
     Active Substance: DOXORUBICIN HYDROCHLORIDE
     Indication: HODGKIN^S DISEASE
     Dosage: 48.00 MILLIGRAM, Q2WEEKS
     Route: 042
     Dates: start: 20190802
  10. VINBLASTINE [Suspect]
     Active Substance: VINBLASTINE
     Dosage: 11.30 MILLIGRAM, Q2WEEKS
     Route: 042
     Dates: start: 20191025
  11. BRENTUXIMAB VEDOTIN [Suspect]
     Active Substance: BRENTUXIMAB VEDOTIN
     Indication: HODGKIN^S DISEASE
     Dosage: 94.68 MILLIGRAM, Q2WEEKS
     Route: 042
     Dates: start: 20190802
  12. DEXAMETHASONE. [Suspect]
     Active Substance: DEXAMETHASONE
     Indication: NAUSEA
     Dosage: 4.0 MILLIGRAM, Q2WEEKS
     Route: 042
     Dates: start: 20191025
  13. ZOFRAN [Concomitant]
     Active Substance: ONDANSETRON HYDROCHLORIDE
     Indication: NAUSEA
     Dosage: 3 MILLIGRAM, BID
     Route: 048
     Dates: start: 20190913
  14. COTRIMOXAZOLE [Concomitant]
     Active Substance: SULFAMETHOXAZOLE\TRIMETHOPRIM
     Indication: PNEUMOCYSTIS JIROVECII INFECTION
     Dosage: 160.16 MILLIGRAM, TID
     Route: 048
     Dates: start: 20191030
  15. VINBLASTINE [Suspect]
     Active Substance: VINBLASTINE
     Indication: HODGKIN^S DISEASE
     Dosage: 11.60 MILLIGRAM, Q2WEEKS
     Route: 042
     Dates: start: 20190802
  16. LITICAN                            /00690801/ [Concomitant]
     Active Substance: ALIZAPRIDE
     Indication: NAUSEA
     Dosage: 50 MILLIGRAM
     Route: 048
     Dates: start: 20190812
  17. MOVICOL [Concomitant]
     Active Substance: POLYETHYLENE GLYCOL 3350\POTASSIUM CHLORIDE\SODIUM BICARBONATE\SODIUM CHLORIDE
     Indication: CONSTIPATION
     Dosage: UNK
     Route: 048
     Dates: start: 20190812

REACTIONS (2)
  - Pneumonia [Not Recovered/Not Resolved]
  - Anaemia [Recovering/Resolving]

NARRATIVE: CASE EVENT DATE: 20191011
